FAERS Safety Report 10619502 (Version 4)
Quarter: 2016Q1

REPORT INFORMATION
  Report Type: Report from Study
  Country: NL (occurrence: NL)
  Receive Date: 20141202
  Receipt Date: 20160119
  Transmission Date: 20160525
  Serious: Yes (Hospitalization)
  Sender: FDA-Public Use
  Company Number: NL-EMD SERONO-7258481

PATIENT
  Sex: Male

DRUGS (1)
  1. REBIF [Suspect]
     Active Substance: INTERFERON BETA-1A
     Indication: MULTIPLE SCLEROSIS
     Dosage: REBIF DOSE WAS STARTED SINCE 25 SEP 2013 TO 21 NOV 2014
     Route: 058
     Dates: start: 20130925

REACTIONS (9)
  - Hyperhidrosis [Unknown]
  - Injection site pain [Unknown]
  - Weight decreased [Unknown]
  - Pyrexia [Unknown]
  - Injection site discolouration [Not Recovered/Not Resolved]
  - Syncope [Unknown]
  - Infection [Unknown]
  - Injection site swelling [Unknown]
  - Influenza like illness [Unknown]
